FAERS Safety Report 5411538-2 (Version None)
Quarter: 2007Q3

REPORT INFORMATION
  Report Type: 
  Country: None (occurrence: None)
  Receive Date: 20070810
  Receipt Date: 20070419
  Transmission Date: 20080115
  Serious: Yes (Hospitalization, Other)
  Sender: FDA-Public Use
  Company Number: US-PFIZER INC-2007058145

PATIENT
  Sex: Female
  Weight: 85.7 kg

DRUGS (4)
  1. CELEBREX [Suspect]
     Indication: ARTHRITIS
     Dosage: DAILY DOSE:200MG
     Route: 048
     Dates: start: 19990504, end: 20020913
  2. CELEBREX [Suspect]
     Indication: PAIN MANAGEMENT
  3. ADVIL LIQUI-GELS [Concomitant]
  4. ACETYLSALICYLIC ACID SRT [Concomitant]

REACTIONS (3)
  - CEREBROVASCULAR ACCIDENT [None]
  - DYSARTHRIA [None]
  - PARALYSIS [None]
